FAERS Safety Report 11514587 (Version 1)
Quarter: 2015Q3

REPORT INFORMATION
  Report Type: Report from Study
  Country: US (occurrence: US)
  Receive Date: 20150916
  Receipt Date: 20150916
  Transmission Date: 20151125
  Serious: Yes (Hospitalization)
  Sender: FDA-Public Use
  Company Number: US-ACTELION-A-NJ2015-123905

PATIENT
  Age: 14 Month
  Sex: Male

DRUGS (14)
  1. ZAVESCA [Suspect]
     Active Substance: MIGLUSTAT
     Indication: GAUCHER^S DISEASE
     Dosage: 100 MG, QD
     Route: 048
  2. VITAMIN D3 [Concomitant]
     Active Substance: CHOLECALCIFEROL
     Dosage: 2.5 ML, QD
     Dates: start: 20150618
  3. IRON COMPLEX [Concomitant]
     Dosage: 0.5 ML, QD
     Dates: start: 20150618
  4. METOCLOPRAMIDE. [Concomitant]
     Active Substance: METOCLOPRAMIDE
     Dosage: 1.3 ML, BID
     Route: 048
     Dates: start: 20150618
  5. NYSTATIN. [Concomitant]
     Active Substance: NYSTATIN
     Dosage: 1 ML, TID
     Dates: start: 20150618
  6. MAGONATE [Concomitant]
     Active Substance: MAGNESIUM CARBONATE
     Dosage: 2.5 ML, Q8HRS
     Route: 048
     Dates: start: 20150618
  7. MCT [Concomitant]
     Dosage: 2.5 ML, QD
     Route: 048
     Dates: start: 20150618
  8. TACROLIMUS. [Concomitant]
     Active Substance: TACROLIMUS
     Dosage: 1 DOSE, BID
     Dates: start: 20150618
  9. LANSOPRAZOLE. [Concomitant]
     Active Substance: LANSOPRAZOLE
     Dosage: 2.5 ML, QD
     Route: 048
     Dates: start: 20150618
  10. ATOVAQUONE. [Concomitant]
     Active Substance: ATOVAQUONE
     Dosage: 1.8 ML, QD
     Dates: start: 20150618
  11. VALCYTE [Concomitant]
     Active Substance: VALGANCICLOVIR HYDROCHLORIDE
     Dosage: 3.5 ML, QD
     Dates: start: 20150618
  12. PREDNISOLONE. [Concomitant]
     Active Substance: PREDNISOLONE
     Dosage: 2 ML, QD
     Route: 048
     Dates: start: 20150618
  13. ASPIRIN. [Concomitant]
     Active Substance: ASPIRIN
     Dosage: 0.5 TABLET, QD
     Route: 048
     Dates: start: 20150618
  14. AMLODIPINE [Concomitant]
     Active Substance: AMLODIPINE BESYLATE
     Dosage: 0.5 TABLET, QD
     Route: 048
     Dates: start: 20150618

REACTIONS (1)
  - Infection [Unknown]

NARRATIVE: CASE EVENT DATE: 20150813
